FAERS Safety Report 5122432-9 (Version None)
Quarter: 2006Q4

REPORT INFORMATION
  Report Type: 
  Country: None (occurrence: None)
  Receive Date: 20061004
  Receipt Date: 20060921
  Transmission Date: 20070319
  Serious: Yes (Hospitalization)
  Sender: FDA-Public Use
  Company Number: 2006BI010847

PATIENT
  Age: 85 Year
  Sex: Female

DRUGS (11)
  1. AVONEX [Suspect]
     Indication: MULTIPLE SCLEROSIS
     Dosage: 30 UG; QW; IM
     Route: 030
     Dates: start: 20040811
  2. ASPIRIN [Concomitant]
  3. PLAVIX [Concomitant]
  4. NABUMETON [Concomitant]
  5. HYOSCYAMINE [Concomitant]
  6. METFORMIN HCL [Concomitant]
  7. ZOCOR [Concomitant]
  8. PERCOSET [Concomitant]
  9. LAFSON [Concomitant]
  10. FIBERCON [Concomitant]
  11. DULCOLAX [Concomitant]

REACTIONS (10)
  - ARTHRALGIA [None]
  - FATIGUE [None]
  - FRUSTRATION [None]
  - GRIP STRENGTH DECREASED [None]
  - HYPERTONIC BLADDER [None]
  - MUSCLE SPASMS [None]
  - NEPHROLITHIASIS [None]
  - NEUROPATHY PERIPHERAL [None]
  - TERMINAL DRIBBLING [None]
  - TRANSIENT ISCHAEMIC ATTACK [None]
